FAERS Safety Report 22046833 (Version 1)
Quarter: 2023Q1

REPORT INFORMATION
  Report Type: Spontaneous
  Country: US (occurrence: US)
  Receive Date: 20230228
  Receipt Date: 20230228
  Transmission Date: 20230417
  Serious: Yes (Hospitalization)
  Sender: FDA-Public Use
  Company Number: US-STRIDES ARCOLAB LIMITED-2023SP003045

PATIENT
  Sex: Female

DRUGS (4)
  1. LORAZEPAM [Suspect]
     Active Substance: LORAZEPAM
     Indication: Catatonia
     Dosage: 1 MILLIGRAM, TID, DURATION: 3 TIMES/DAY (CUMULATIVE DOSE 3 MILLIGRAM)
     Route: 065
  2. LORAZEPAM [Suspect]
     Active Substance: LORAZEPAM
     Dosage: 1 MILLIGRAM (LIQUID)
     Route: 065
  3. LORAZEPAM [Suspect]
     Active Substance: LORAZEPAM
     Dosage: 0.25 MILLIGRAM, TID, DURATION: 3 TIMES/DAY
     Route: 065
  4. OLANZAPINE [Suspect]
     Active Substance: OLANZAPINE
     Indication: Psychotic disorder
     Dosage: UNK, DOSE WAS TITRATED
     Route: 065

REACTIONS (5)
  - Bradycardia [Unknown]
  - Somnolence [Unknown]
  - Hypotension [Unknown]
  - Therapy partial responder [Unknown]
  - Off label use [Unknown]
